FAERS Safety Report 11776575 (Version 6)
Quarter: 2017Q3

REPORT INFORMATION
  Report Type: Report from Study
  Country: FR (occurrence: FR)
  Receive Date: 20151125
  Receipt Date: 20170728
  Transmission Date: 20171127
  Serious: Yes (Hospitalization, Disabling, Other)
  Sender: FDA-Public Use
  Company Number: PHHY2015FR146773

PATIENT
  Age: 63 Year
  Sex: Female
  Weight: 71 kg

DRUGS (12)
  1. NO TREATMENT RECEIVED [Suspect]
     Active Substance: UNSPECIFIED INGREDIENT
     Indication: PROPHYLAXIS AGAINST TRANSPLANT REJECTION
  2. NEORAL [Suspect]
     Active Substance: CYCLOSPORINE
     Indication: IMMUNOSUPPRESSANT DRUG THERAPY
  3. MYFORTIC [Suspect]
     Active Substance: MYCOPHENOLATE SODIUM
     Indication: IMMUNOSUPPRESSANT DRUG THERAPY
     Dosage: 720 MG, QD
     Route: 048
     Dates: start: 20130924, end: 20150622
  4. NO TREATMENT RECEIVED [Suspect]
     Active Substance: UNSPECIFIED INGREDIENT
     Indication: LIVER TRANSPLANT
     Route: 065
  5. PROGRAF [Suspect]
     Active Substance: TACROLIMUS\TACROLIMUS ANHYDROUS
     Dosage: 1 MG, QD
     Route: 048
     Dates: start: 20160802
  6. NEORAL [Suspect]
     Active Substance: CYCLOSPORINE
     Indication: LIVER TRANSPLANT
     Dosage: 100 MG, BID
     Route: 048
     Dates: start: 20131206
  7. PROGRAF [Suspect]
     Active Substance: TACROLIMUS\TACROLIMUS ANHYDROUS
     Indication: IMMUNOSUPPRESSANT DRUG THERAPY
     Dosage: 2 MG, QD
     Route: 065
     Dates: start: 20130802, end: 20131121
  8. MYFORTIC [Suspect]
     Active Substance: MYCOPHENOLATE SODIUM
     Dosage: 1440 MG, QD
     Route: 048
     Dates: start: 20150908
  9. PROGRAF [Suspect]
     Active Substance: TACROLIMUS\TACROLIMUS ANHYDROUS
     Dosage: 2 MG, QD
     Route: 048
     Dates: start: 20150623, end: 20160801
  10. MYFORTIC [Suspect]
     Active Substance: MYCOPHENOLATE SODIUM
     Dosage: 360 MG, QD
     Route: 048
     Dates: start: 20150623, end: 20150907
  11. MYFORTIC [Suspect]
     Active Substance: MYCOPHENOLATE SODIUM
     Indication: LIVER TRANSPLANT
     Dosage: 1440 MG, QD
     Route: 048
     Dates: start: 20130410, end: 20130923
  12. PROGRAF [Suspect]
     Active Substance: TACROLIMUS\TACROLIMUS ANHYDROUS
     Dosage: 1 MG, QD
     Route: 065
     Dates: start: 20131122, end: 20150622

REACTIONS (22)
  - Crepitations [Unknown]
  - Sleep apnoea syndrome [Not Recovered/Not Resolved]
  - Wheezing [Unknown]
  - Oedema peripheral [Unknown]
  - Osteoarthritis [Recovering/Resolving]
  - Vomiting [Recovering/Resolving]
  - Pyrexia [Unknown]
  - Dyspnoea [Unknown]
  - Chronic gastritis [Recovering/Resolving]
  - Neuralgia [Not Recovered/Not Resolved]
  - Abdominal pain [Recovering/Resolving]
  - Constipation [Recovered/Resolved]
  - Dyspnoea exertional [Recovering/Resolving]
  - Abdominal pain upper [Recovered/Resolved]
  - Pneumonia [Recovered/Resolved]
  - Back pain [Recovering/Resolving]
  - Pneumonia [Recovered/Resolved]
  - Deep vein thrombosis [Unknown]
  - Carpal tunnel syndrome [Recovered/Resolved]
  - Chest pain [Unknown]
  - Osteoporotic fracture [Not Recovered/Not Resolved]
  - Phlebitis [Unknown]

NARRATIVE: CASE EVENT DATE: 201310
